FAERS Safety Report 4832148-1 (Version None)
Quarter: 2005Q4

REPORT INFORMATION
  Report Type: 
  Country: None (occurrence: None)
  Receive Date: 20051118
  Receipt Date: 20051108
  Transmission Date: 20060501
  Serious: Yes (Other)
  Sender: FDA-Public Use
  Company Number: US-MERCK-0511USA01245

PATIENT
  Age: 65 Year
  Sex: Male

DRUGS (1)
  1. ZOCOR [Suspect]
     Route: 048
     Dates: end: 20040101

REACTIONS (2)
  - CARDIAC DISORDER [None]
  - PAIN IN EXTREMITY [None]
